FAERS Safety Report 9230649 (Version 1)
Quarter: 2013Q2

REPORT INFORMATION
  Report Type: Spontaneous
  Country: CN (occurrence: CN)
  Receive Date: 20130415
  Receipt Date: 20130415
  Transmission Date: 20140414
  Serious: Yes (Death, Other)
  Sender: FDA-Public Use
  Company Number: CN-PFIZER INC-2013113058

PATIENT
  Age: 48 Year
  Sex: Female

DRUGS (4)
  1. DEXAMETHASONE SODIUM PHOSPHATE [Suspect]
     Indication: PLASMA CELL MYELOMA
     Dosage: 2 CYCLES
  2. DEXAMETHASONE SODIUM PHOSPHATE [Suspect]
     Indication: T-CELL LYMPHOMA
  3. BORTEZOMIB [Suspect]
     Indication: PLASMA CELL MYELOMA
     Dosage: 2 CYCLES
  4. BORTEZOMIB [Suspect]
     Indication: T-CELL LYMPHOMA

REACTIONS (7)
  - Respiratory failure [Fatal]
  - Circulatory collapse [Fatal]
  - Electrolyte imbalance [Fatal]
  - Anaemia [Fatal]
  - Hypoproteinaemia [Unknown]
  - Abdominal pain [Unknown]
  - Diarrhoea [Unknown]
